FAERS Safety Report 6252230-4 (Version None)
Quarter: 2009Q2

REPORT INFORMATION
  Report Type: 
  Country: None (occurrence: None)
  Receive Date: 20090629
  Receipt Date: 20090615
  Transmission Date: 20091009
  Serious: Yes (Disabling)
  Sender: FDA-Public Use
  Company Number: RENA-1000471

PATIENT
  Age: 62 Year
  Sex: Female
  Weight: 55 kg

DRUGS (7)
  1. RENAGEL [Suspect]
     Indication: HYPERPHOSPHATAEMIA
     Dosage: 0.8 G TID ORAL
     Route: 048
     Dates: start: 20081101, end: 20090201
  2. ROCALTROL [Concomitant]
  3. TITRALAC (AMINOACETIC ACID, CALCIUM CARBONATE) [Concomitant]
  4. BENUTREX (ASCORBIC ACID, CALCIUM PANTOTHENATE, CYANOCOBALAMIN, NICOTIN [Concomitant]
  5. CARNITINE (CARNITINE) [Concomitant]
  6. FOLIC ACID [Concomitant]
  7. ERYTHROPOIETIN (ERYTHROPOIETIN) [Concomitant]

REACTIONS (3)
  - BALANCE DISORDER [None]
  - GRIP STRENGTH DECREASED [None]
  - MUSCULAR WEAKNESS [None]
